FAERS Safety Report 21141712 (Version 1)
Quarter: 2022Q3

REPORT INFORMATION
  Report Type: Spontaneous
  Country: None (occurrence: FI)
  Receive Date: 20220728
  Receipt Date: 20220728
  Transmission Date: 20221027
  Serious: Yes (Other)
  Sender: FDA-Public Use
  Company Number: FI-Nova Laboratories Limited-2131315

PATIENT
  Sex: Male

DRUGS (6)
  1. PURIXAN [Suspect]
     Active Substance: MERCAPTOPURINE
     Indication: Acute lymphocytic leukaemia
  2. DASATINIB [Suspect]
     Active Substance: DASATINIB
     Dates: end: 20220615
  3. DASATINIB [Suspect]
     Active Substance: DASATINIB
     Dates: start: 202007, end: 20220615
  4. PONATINIB [Suspect]
     Active Substance: PONATINIB
     Dates: start: 20220615
  5. METHOTREXATE [Suspect]
     Active Substance: METHOTREXATE
  6. METHOTREXATE [Suspect]
     Active Substance: METHOTREXATE
     Dates: start: 202007, end: 20220615

REACTIONS (3)
  - Acute lymphocytic leukaemia recurrent [Unknown]
  - Cytogenetic analysis abnormal [Unknown]
  - Minimal residual disease [Unknown]

NARRATIVE: CASE EVENT DATE: 20220101
